FAERS Safety Report 5872876-2 (Version None)
Quarter: 2008Q3

REPORT INFORMATION
  Report Type: 
  Country: None (occurrence: None)
  Receive Date: 20080903
  Receipt Date: 20080822
  Transmission Date: 20090109
  Serious: Yes (Hospitalization, Other)
  Sender: FDA-Public Use
  Company Number: JPI-P-004127

PATIENT
  Age: 34 Year
  Sex: Male
  Weight: 69.8539 kg

DRUGS (9)
  1. XYREM [Suspect]
     Indication: INSOMNIA
     Dosage: SEE IMAGE
     Route: 048
     Dates: start: 20080627, end: 20080708
  2. XYREM [Suspect]
     Indication: INSOMNIA
     Dosage: SEE IMAGE
     Route: 048
     Dates: start: 20080708, end: 20080708
  3. XYREM [Suspect]
     Indication: INSOMNIA
     Dosage: SEE IMAGE
     Route: 048
     Dates: start: 20080708, end: 20080709
  4. MIRTAZAPINE [Concomitant]
  5. ALPRAZOLAM [Concomitant]
  6. OMEPRAZOLE [Concomitant]
  7. CLONAZEPAM [Concomitant]
  8. PAROXETINE HCL (PAROXETINE HYDRHOCHLORIDE) [Concomitant]
  9. PROPRANOLOL [Concomitant]

REACTIONS (10)
  - ANXIETY [None]
  - BLOOD PRESSURE INCREASED [None]
  - CONDITION AGGRAVATED [None]
  - DEPRESSION [None]
  - HEADACHE [None]
  - HYPOPHAGIA [None]
  - IRRITABILITY [None]
  - NAUSEA [None]
  - PANIC ATTACK [None]
  - POLLAKIURIA [None]
